FAERS Safety Report 5375163-4 (Version None)
Quarter: 2007Q2

REPORT INFORMATION
  Report Type: 
  Country: None (occurrence: None)
  Receive Date: 20070629
  Receipt Date: 20060418
  Transmission Date: 20071010
  Serious: No
  Sender: FDA-Public Use
  Company Number: US-ASTRAZENECA-2006UW06761

PATIENT
  Age: 80 Year
  Sex: Female

DRUGS (2)
  1. TAMOXIFEN CITRATE [Suspect]
     Route: 048
  2. FEMARA [Suspect]

REACTIONS (2)
  - POSTMENOPAUSE [None]
  - SWELLING [None]
